FAERS Safety Report 17198878 (Version 1)
Quarter: 2019Q4

REPORT INFORMATION
  Report Type: Spontaneous
  Country: IT (occurrence: IT)
  Receive Date: 20191225
  Receipt Date: 20191225
  Transmission Date: 20200122
  Serious: Yes (Hospitalization)
  Sender: FDA-Public Use
  Company Number: IT-AMGEN-ITASP2019210811

PATIENT
  Age: 5 Year
  Sex: Female
  Weight: 20 kg

DRUGS (2)
  1. ADALIMUMAB [Suspect]
     Active Substance: ADALIMUMAB
     Indication: JUVENILE IDIOPATHIC ARTHRITIS
     Dosage: 20 MILLIGRAM, CYCLICAL
     Route: 058
     Dates: start: 20190901
  2. METHOTREXATE. [Concomitant]
     Active Substance: METHOTREXATE
     Dosage: UNK

REACTIONS (1)
  - Pneumonitis [Recovered/Resolved]

NARRATIVE: CASE EVENT DATE: 20191206
